FAERS Safety Report 4266350-7 (Version None)
Quarter: 2004Q1

REPORT INFORMATION
  Report Type: 
  Country: None (occurrence: None)
  Receive Date: 20040106
  Receipt Date: 20031117
  Transmission Date: 20041129
  Serious: Yes (Hospitalization)
  Sender: FDA-Public Use
  Company Number: 2003-CN-00508CN

PATIENT

DRUGS (1)
  1. MICARDIS [Suspect]
     Dosage: PO
     Route: 048

REACTIONS (1)
  - HYPERKALAEMIA [None]
